FAERS Safety Report 6943717-7 (Version None)
Quarter: 2010Q3

REPORT INFORMATION
  Report Type: 
  Country: None (occurrence: None)
  Receive Date: 20100826
  Receipt Date: 20100824
  Transmission Date: 20110219
  Serious: Yes (Hospitalization)
  Sender: FDA-Public Use
  Company Number: A0783354A

PATIENT
  Age: 54 Year
  Sex: Female

DRUGS (8)
  1. AVANDIA [Suspect]
     Indication: DIABETES MELLITUS
     Dosage: 8MG PER DAY
     Route: 048
     Dates: start: 20040909, end: 20050725
  2. LASIX [Concomitant]
  3. GLYBURIDE [Concomitant]
  4. TRENTAL [Concomitant]
  5. VASOTEC [Concomitant]
  6. ATENOLOL [Concomitant]
  7. NEURONTIN [Concomitant]
  8. ASPIRIN [Concomitant]

REACTIONS (11)
  - ANAEMIA [None]
  - BALANCE DISORDER [None]
  - CARDIAC FAILURE CONGESTIVE [None]
  - DYSPNOEA [None]
  - GAIT DISTURBANCE [None]
  - JOINT SWELLING [None]
  - OEDEMA PERIPHERAL [None]
  - OXYGEN SUPPLEMENTATION [None]
  - RENAL FAILURE CHRONIC [None]
  - SWELLING [None]
  - WEIGHT INCREASED [None]
